FAERS Safety Report 11592159 (Version 3)
Quarter: 2015Q4

REPORT INFORMATION
  Report Type: Report from Study
  Country: DE (occurrence: DE)
  Receive Date: 20151005
  Receipt Date: 20151109
  Transmission Date: 20160304
  Serious: Yes (Other)
  Sender: FDA-Public Use
  Company Number: PHHY2015DE119645

PATIENT
  Age: 43 Year
  Sex: Female

DRUGS (1)
  1. GILENYA [Suspect]
     Active Substance: FINGOLIMOD HYDROCHLORIDE
     Indication: MULTIPLE SCLEROSIS
     Dosage: 0.5 MG, QD
     Route: 048
     Dates: start: 20150610

REACTIONS (16)
  - Multiple sclerosis relapse [Unknown]
  - Dysphagia [Unknown]
  - White blood cell count decreased [Recovering/Resolving]
  - Cough [Not Recovered/Not Resolved]
  - Hypoaesthesia [Unknown]
  - Dysphonia [Not Recovered/Not Resolved]
  - Vomiting [Unknown]
  - Oral discomfort [Unknown]
  - Eyelid ptosis [Unknown]
  - Influenza [Not Recovered/Not Resolved]
  - Muscular weakness [Unknown]
  - Fall [Not Recovered/Not Resolved]
  - Haematoma [Not Recovered/Not Resolved]
  - Skin discolouration [Not Recovered/Not Resolved]
  - Joint injury [Not Recovered/Not Resolved]
  - Joint swelling [Not Recovered/Not Resolved]

NARRATIVE: CASE EVENT DATE: 201508
